FAERS Safety Report 5510125-5 (Version None)
Quarter: 2007Q4

REPORT INFORMATION
  Report Type: 
  Country: None (occurrence: None)
  Receive Date: 20071106
  Receipt Date: 20071024
  Transmission Date: 20080405
  Serious: Yes (Hospitalization)
  Sender: FDA-Public Use
  Company Number: KADN20070102

PATIENT
  Age: 77 Year
  Sex: Male

DRUGS (10)
  1. MORPHINE [Suspect]
     Indication: CANCER PAIN
     Dosage: ORAL
     Route: 048
     Dates: start: 20070214, end: 20070217
  2. FAMOTIDINE [Suspect]
     Indication: GASTRITIS
     Dates: start: 20070216, end: 20070218
  3. TELMISARTAN [Concomitant]
  4. DICLOFENAC SODIUM [Concomitant]
  5. EPERISONE [Concomitant]
  6. DEXAMETHASONE [Concomitant]
  7. AMIKACIN SULFATE [Concomitant]
  8. ALOSENN [Concomitant]
  9. HALOPERIDOL [Concomitant]
  10. DEXTROSE [Concomitant]

REACTIONS (7)
  - ABNORMAL BEHAVIOUR [None]
  - DELIRIUM [None]
  - FALL [None]
  - INSOMNIA [None]
  - NAUSEA [None]
  - SPEECH DISORDER [None]
  - VOMITING [None]
